FAERS Safety Report 11264592 (Version 2)
Quarter: 2015Q3

REPORT INFORMATION
  Report Type: Spontaneous
  Country: JP (occurrence: JP)
  Receive Date: 20150713
  Receipt Date: 20150717
  Transmission Date: 20151125
  Serious: Yes (Death)
  Sender: FDA-Public Use
  Company Number: JP-009507513-1507JPN004455

PATIENT
  Age: 57 Year
  Sex: Male
  Weight: 57 kg

DRUGS (6)
  1. GRAN [Concomitant]
     Active Substance: FILGRASTIM
     Indication: FEBRILE NEUTROPENIA
     Dosage: 75 MICROGRAM, QD
     Route: 051
     Dates: start: 20131018, end: 20131027
  2. MEROPEN [Concomitant]
     Active Substance: MEROPENEM
     Indication: FEBRILE NEUTROPENIA
     Dosage: 0.5 G, QD
     Route: 051
     Dates: start: 20131018, end: 20131029
  3. CRAVIT [Concomitant]
     Active Substance: LEVOFLOXACIN
     Indication: PNEUMONIA
     Dosage: 500 MG, QD
     Route: 051
     Dates: start: 20131026, end: 20131029
  4. CANCIDAS [Suspect]
     Active Substance: CASPOFUNGIN ACETATE
     Indication: FEBRILE NEUTROPENIA
     Dosage: 50 MG, QD
     Route: 041
     Dates: start: 20131024, end: 20131029
  5. CANCIDAS [Suspect]
     Active Substance: CASPOFUNGIN ACETATE
     Indication: FEBRILE NEUTROPENIA
     Dosage: 70 MG, QD
     Route: 041
     Dates: start: 20131023, end: 20131023
  6. DENOSINE [Concomitant]
     Active Substance: GANCICLOVIR
     Indication: PNEUMONIA
     Dosage: 500 MG, BID
     Route: 051
     Dates: start: 20131026, end: 20131029

REACTIONS (3)
  - Pneumonia [Fatal]
  - Blood lactate dehydrogenase increased [Not Recovered/Not Resolved]
  - Blood alkaline phosphatase increased [Not Recovered/Not Resolved]

NARRATIVE: CASE EVENT DATE: 20131028
